FAERS Safety Report 4658776-4 (Version None)
Quarter: 2005Q2

REPORT INFORMATION
  Report Type: 
  Country: None (occurrence: None)
  Receive Date: 20050509
  Receipt Date: 20050425
  Transmission Date: 20051028
  Serious: Yes (Death, Other)
  Sender: FDA-Public Use
  Company Number: 2004027127

PATIENT
  Age: 59 Year
  Sex: Female

DRUGS (10)
  1. ATORVASTATIN CALCIUM [Suspect]
     Indication: ILL-DEFINED DISORDER
     Dosage: 40 MG (DAILY)
  2. DILTIAZEM [Suspect]
     Indication: ANGINA PECTORIS
     Dosage: 120 MG (DAILY)
  3. NITROGLYCERIN [Concomitant]
  4. ISOSORBIDE MONONITRATE [Concomitant]
  5. INSULIN [Concomitant]
  6. METOCLOPRAMIDE [Concomitant]
  7. ERGOCALCIFEROL (ERGOCALCIFEROL) [Concomitant]
  8. OMEPRAZOLE [Concomitant]
  9. CALCIUM (CALCIUM) [Concomitant]
  10. ERYTHROPOIETIN (ERYTHROPOIETIN) [Concomitant]

REACTIONS (7)
  - ANGINA PECTORIS [None]
  - ASTHENIA [None]
  - BLOOD CREATINE PHOSPHOKINASE INCREASED [None]
  - CARDIAC ARREST [None]
  - DRUG INTERACTION [None]
  - MUSCULAR WEAKNESS [None]
  - MYOSITIS [None]
